FAERS Safety Report 7319243-2 (Version None)
Quarter: 2011Q1

REPORT INFORMATION
  Report Type: 
  Country: None (occurrence: None)
  Receive Date: 20110223
  Receipt Date: 20110223
  Transmission Date: 20110831
  Serious: Yes (Other)
  Sender: FDA-Public Use
  Company Number: None

PATIENT
  Age: 69 Year
  Sex: Male
  Weight: 64.8644 kg

DRUGS (2)
  1. PRIVINIL [Concomitant]
  2. LISINOPRIL [Suspect]
     Indication: HYPERTENSION
     Dosage: 20MG TWO TABLETS QD PO
     Route: 048
     Dates: start: 19980810, end: 19980910

REACTIONS (7)
  - COUGH [None]
  - DIZZINESS [None]
  - THROAT IRRITATION [None]
  - DIARRHOEA [None]
  - PRODUCT SUBSTITUTION ISSUE [None]
  - ABDOMINAL DISCOMFORT [None]
  - CHEST PAIN [None]
